FAERS Safety Report 4976099-0 (Version None)
Quarter: 2006Q2

REPORT INFORMATION
  Report Type: 
  Country: None (occurrence: None)
  Receive Date: 20060411
  Receipt Date: 20060324
  Transmission Date: 20061013
  Serious: Yes (Other)
  Sender: FDA-Public Use
  Company Number: US200603006319

PATIENT
  Age: 73 Year
  Sex: Female

DRUGS (3)
  1. FORTEO [Suspect]
     Indication: OSTEOPOROSIS
     Dates: start: 20050601
  2. FORETO PEN (FORTEO PEN) PEN, DISOSABLE [Concomitant]
  3. VITAMINS WITH MINERALS [Concomitant]

REACTIONS (3)
  - AORTIC VALVE INCOMPETENCE [None]
  - PHARMACEUTICAL PRODUCT COMPLAINT [None]
  - WEIGHT GAIN POOR [None]
